FAERS Safety Report 4469323-4 (Version None)
Quarter: 2004Q4

REPORT INFORMATION
  Report Type: 
  Country: None (occurrence: None)
  Receive Date: 20041008
  Receipt Date: 20031203
  Transmission Date: 20050328
  Serious: No
  Sender: FDA-Public Use
  Company Number: US-BRISTOL-MYERS SQUIBB COMPANY-12448858

PATIENT
  Sex: Female

DRUGS (3)
  1. AVAPRO [Suspect]
     Indication: HYPERTENSION
  2. IMDUR [Concomitant]
  3. METOPROLOL [Concomitant]

REACTIONS (2)
  - DIARRHOEA [None]
  - ULCER [None]
